FAERS Safety Report 6810337-4 (Version None)
Quarter: 2010Q2

REPORT INFORMATION
  Report Type: 
  Country: None (occurrence: None)
  Receive Date: 20100630
  Receipt Date: 20100617
  Transmission Date: 20101027
  Serious: Yes (Hospitalization)
  Sender: FDA-Public Use
  Company Number: PHHY2010US30932

PATIENT
  Sex: Female
  Weight: 121 kg

DRUGS (32)
  1. RECLAST [Suspect]
     Indication: OSTEOPOROSIS
     Dosage: 5MG/ YEAR
     Route: 042
     Dates: start: 20100317
  2. VICODIN [Concomitant]
     Dosage: 4 TABLET, QD
     Route: 048
     Dates: start: 20060531
  3. VICODIN [Concomitant]
     Dosage: 4 TABLET, QD
     Route: 048
     Dates: start: 20070711
  4. VICODIN [Concomitant]
     Dosage: UNK
     Route: 048
     Dates: start: 20100324
  5. LORAZEPAM [Concomitant]
     Dosage: 7 TABLET, HQS
     Route: 048
     Dates: start: 20060531
  6. LORAZEPAM [Concomitant]
     Dosage: 7 TABLETS, QHS
     Route: 048
     Dates: start: 20070711
  7. LORAZEPAM [Concomitant]
     Dosage: 1 MG, DAY
     Route: 048
     Dates: start: 20100324
  8. PLAVIX [Concomitant]
     Dosage: 75 MG, QD
     Dates: start: 20060531
  9. PLAVIX [Concomitant]
     Dosage: 75 MG, QD
     Dates: start: 20070711
  10. PLAVIX [Concomitant]
     Dosage: 75 MG, QD
     Dates: start: 20100324
  11. METHOTREXATE SODIUM [Concomitant]
     Dosage: 15 MG, QW
     Route: 048
     Dates: start: 20060531
  12. METHOTREXATE SODIUM [Concomitant]
     Dosage: 6 TABLETS, QW
     Route: 048
     Dates: start: 20070711
  13. METHOTREXATE SODIUM [Concomitant]
     Dosage: 6 TABLETS,QW
     Route: 048
     Dates: start: 20100324
  14. FOLIC ACID [Concomitant]
     Dosage: UNK
     Dates: start: 20060531
  15. FOLIC ACID [Concomitant]
     Dosage: UNK
     Dates: start: 20070711
  16. FOLIC ACID [Concomitant]
     Dosage: UNK
     Dates: start: 20100324
  17. NEUROXIN [Concomitant]
     Dosage: 300 MG, QD
     Route: 048
     Dates: start: 20060531
  18. NEUROXIN [Concomitant]
     Dosage: 300 MG, BID
     Route: 048
     Dates: start: 20070711
  19. NEUROXIN [Concomitant]
     Dosage: 300 MG, BID
     Route: 048
     Dates: start: 20100324
  20. MVT [Concomitant]
  21. CA-B50 [Concomitant]
  22. MULTIVITAMIN [Concomitant]
     Dosage: QD
     Route: 048
     Dates: start: 20100531
  23. MULTIVITAMIN [Concomitant]
     Dosage: QD
     Route: 048
     Dates: start: 20070711
  24. MULTIVITAMIN [Concomitant]
     Dosage: UNK
     Route: 048
     Dates: start: 20100324
  25. ORENCIA [Concomitant]
     Dosage: UNK
     Dates: start: 20060531
  26. REMPON [Concomitant]
     Dosage: UNK
     Dates: start: 20060531
  27. REMPON [Concomitant]
     Dosage: UNK
     Dates: start: 20070711
  28. REMPON [Concomitant]
     Dosage: UNK
     Dates: start: 20100324
  29. MIRTAZAPINE [Concomitant]
     Dosage: UNK
     Dates: start: 20070920
  30. MIRTAZAPINE [Concomitant]
     Dosage: 15 MG, QHS
     Dates: start: 20071024
  31. MIRTAZAPINE [Concomitant]
     Dosage: UNK
     Dates: start: 20100324
  32. HONASC [Concomitant]

REACTIONS (6)
  - BLOOD CREATINE INCREASED [None]
  - DIARRHOEA [None]
  - GASTROENTERITIS [None]
  - NAUSEA [None]
  - VOMITING [None]
  - WHITE BLOOD CELL COUNT INCREASED [None]
